FAERS Safety Report 15575789 (Version 2)
Quarter: 2018Q4

REPORT INFORMATION
  Report Type: Spontaneous
  Country: CA (occurrence: CA)
  Receive Date: 20181101
  Receipt Date: 20181105
  Transmission Date: 20190205
  Serious: Yes (Death)
  Sender: FDA-Public Use
  Company Number: CA-PFIZER INC-2017381898

PATIENT
  Age: 71 Year
  Sex: Female

DRUGS (6)
  1. XELJANZ [Suspect]
     Active Substance: TOFACITINIB CITRATE
     Indication: RHEUMATOID ARTHRITIS
     Dosage: 5 MG, 1X/DAY
     Route: 048
     Dates: start: 20170825, end: 201708
  2. PLAQUENIL [Concomitant]
     Active Substance: HYDROXYCHLOROQUINE SULFATE
     Indication: RHEUMATOID ARTHRITIS
     Dosage: UNK
  3. XELJANZ [Suspect]
     Active Substance: TOFACITINIB CITRATE
     Dosage: 5 MG, 1X/DAY
     Route: 048
     Dates: start: 201709, end: 20170920
  4. OXYCODONE [Concomitant]
     Active Substance: OXYCODONE
     Dosage: UNK, 3X/DAY, (EVERY 8 HOURS)
     Dates: start: 2017
  5. XELJANZ [Suspect]
     Active Substance: TOFACITINIB CITRATE
     Dosage: 5 MG, 2X/DAY
     Route: 048
     Dates: start: 2018
  6. PREDNISONE. [Concomitant]
     Active Substance: PREDNISONE
     Dosage: 5 MG, 1X/DAY

REACTIONS (11)
  - Condition aggravated [Recovering/Resolving]
  - Memory impairment [Unknown]
  - Flatulence [Unknown]
  - Drug ineffective [Unknown]
  - Gastrooesophageal reflux disease [Unknown]
  - Inflammation [Unknown]
  - Cystitis [Unknown]
  - Myocardial infarction [Fatal]
  - Disease recurrence [Unknown]
  - Blood urine present [Unknown]
  - Coronary artery disease [Unknown]

NARRATIVE: CASE EVENT DATE: 201708
